FAERS Safety Report 15239706 (Version 2)
Quarter: 2018Q3

REPORT INFORMATION
  Report Type: Spontaneous
  Country: US (occurrence: US)
  Receive Date: 20180803
  Receipt Date: 20180827
  Transmission Date: 20181010
  Serious: No
  Sender: FDA-Public Use
  Company Number: US-SUNOVION-2018SUN002925

PATIENT
  Age: 10 Year
  Sex: Female
  Weight: 31 kg

DRUGS (4)
  1. APTIOM [Suspect]
     Active Substance: ESLICARBAZEPINE ACETATE
     Indication: PRODUCT USED FOR UNKNOWN INDICATION
     Dosage: 200 MG, AT NIGHT 2 1/2 HS
     Route: 048
     Dates: start: 20180711, end: 20180720
  2. APTIOM [Suspect]
     Active Substance: ESLICARBAZEPINE ACETATE
     Dosage: 200 MG (2 TABLETS), UNK
     Route: 055
  3. APTIOM [Suspect]
     Active Substance: ESLICARBAZEPINE ACETATE
     Dosage: 200 MG (TWO AND ONE HALF TABLET), UNK
     Route: 055
  4. APTIOM [Suspect]
     Active Substance: ESLICARBAZEPINE ACETATE
     Dosage: 200 MG (ONE AND ONE?HALF TABLET), UNK
     Route: 055

REACTIONS (3)
  - Product use complaint [Unknown]
  - Dermatitis allergic [Unknown]
  - Rash [Recovered/Resolved]

NARRATIVE: CASE EVENT DATE: 20180720
